FAERS Safety Report 19503761 (Version 3)
Quarter: 2024Q4

REPORT INFORMATION
  Report Type: Report from Study
  Country: DE (occurrence: DE)
  Receive Date: 20210707
  Receipt Date: 20241226
  Transmission Date: 20250114
  Serious: Yes (Hospitalization)
  Sender: PFIZER
  Company Number: DE-002147023-NVSC2020DE243817

PATIENT
  Sex: Male

DRUGS (12)
  1. METHOTREXATE SODIUM [Suspect]
     Active Substance: METHOTREXATE SODIUM
     Indication: Psoriatic arthropathy
     Dosage: 20 MG, WEEKLY
     Route: 058
     Dates: start: 20190205
  2. IBUPROFEN [Suspect]
     Active Substance: IBUPROFEN
     Indication: Psoriatic arthropathy
     Dosage: 600 MG, 1X/DAY
     Dates: start: 20190916
  3. IBUPROFEN [Suspect]
     Active Substance: IBUPROFEN
     Dosage: 1800 MG
     Dates: start: 20190916
  4. IBUPROFEN [Suspect]
     Active Substance: IBUPROFEN
     Dosage: 600MG, 1XDAY
     Dates: start: 20210315
  5. COSENTYX [Suspect]
     Active Substance: SECUKINUMAB
     Indication: Psoriatic arthropathy
     Dosage: 300 MG, MONTHLY (TITRATION PHASE)
     Dates: start: 20191213, end: 20200515
  6. COSENTYX [Suspect]
     Active Substance: SECUKINUMAB
     Dosage: 300 MG, QMO
     Route: 042
     Dates: end: 20200515
  7. DICLOFENAC [Suspect]
     Active Substance: DICLOFENAC
     Indication: Psoriatic arthropathy
     Dosage: 75 MG, WEEKLY
     Dates: start: 20190101, end: 20200115
  8. XELJANZ [Concomitant]
     Active Substance: TOFACITINIB CITRATE
     Dosage: 10 MG
     Dates: start: 20190624, end: 20190822
  9. TALTZ [Concomitant]
     Active Substance: IXEKIZUMAB
     Indication: Psoriatic arthropathy
     Dosage: FREQ:4 WK;80 MG, Q4W
     Dates: start: 20200709
  10. ADALIMUMAB [Concomitant]
     Active Substance: ADALIMUMAB
     Dosage: 40 MG
     Dates: start: 20190829, end: 20191121
  11. SIMPONI [Concomitant]
     Active Substance: GOLIMUMAB
     Dosage: 50 MG
     Dates: start: 20211005, end: 20220220
  12. TREMFYA [Concomitant]
     Active Substance: GUSELKUMAB
     Dosage: 100 MG
     Dates: start: 20220324, end: 20220817

REACTIONS (9)
  - Inguinal hernia [Recovered/Resolved]
  - Psoriatic arthropathy [Unknown]
  - Fibromyalgia [Unknown]
  - Disease recurrence [Unknown]
  - Nasopharyngitis [Unknown]
  - Pyrexia [Unknown]
  - Diarrhoea [Unknown]
  - Bursitis [Unknown]
  - Pruritus [Unknown]

NARRATIVE: CASE EVENT DATE: 20191224
